FAERS Safety Report 6397279-6 (Version None)
Quarter: 2009Q4

REPORT INFORMATION
  Report Type: 
  Country: None (occurrence: None)
  Receive Date: 20091012
  Receipt Date: 20091002
  Transmission Date: 20100525
  Serious: Yes (Hospitalization)
  Sender: FDA-Public Use
  Company Number: US-ASTRAZENECA-2009UW21896

PATIENT
  Age: 45 Year
  Sex: Female

DRUGS (10)
  1. SEROQUEL XR [Suspect]
     Indication: BIPOLAR DISORDER
     Route: 048
     Dates: end: 20090101
  2. SEROQUEL XR [Suspect]
     Dosage: ONCE A DAY IN THE EVENING
     Route: 048
     Dates: start: 20090101, end: 20090803
  3. LOPRESSOR [Concomitant]
     Indication: VENTRICULAR EXTRASYSTOLES
  4. LOPRESSOR [Concomitant]
  5. NAPROSYN [Concomitant]
     Indication: PERICARDITIS
  6. ZOLOFT [Concomitant]
  7. TOPAMAX [Concomitant]
  8. PREVACID [Concomitant]
  9. ZOCOR [Concomitant]
  10. LORAZEPAM [Concomitant]

REACTIONS (7)
  - ELECTROCARDIOGRAM QT PROLONGED [None]
  - EXTRASYSTOLES [None]
  - FEELING ABNORMAL [None]
  - HYPERTENSION [None]
  - INSOMNIA [None]
  - PERICARDIAL EFFUSION [None]
  - PERICARDITIS [None]
